FAERS Safety Report 6189226-7 (Version None)
Quarter: 2009Q2

REPORT INFORMATION
  Report Type: 
  Country: None (occurrence: None)
  Receive Date: 20090512
  Receipt Date: 20090504
  Transmission Date: 20091009
  Serious: Yes (Life-Threatening, Hospitalization)
  Sender: FDA-Public Use
  Company Number: GXKR2009DE05283

PATIENT
  Age: 67 Year
  Sex: Female
  Weight: 99 kg

DRUGS (11)
  1. ASPIRIN [Suspect]
     Indication: ISCHAEMIC HEART DISEASE PROPHYLAXIS
     Dosage: 100 MG, QD, ORAL
     Route: 048
     Dates: start: 20000101
  2. TRIMIPRAMINE           (TRIMIPRAMINE) TABLET [Suspect]
     Indication: DEPRESSION
     Dosage: 100 MG, QD
     Dates: start: 20040101
  3. FUROSEMIDE [Suspect]
     Indication: HYPERTENSION
     Dosage: 40 MG, QD
     Dates: start: 20040101
  4. KINZALKOMB (HYDROCHLOROTHIAZIDE, TELMISARTAN) [Suspect]
     Indication: HYPERTENSION
     Dosage: 1 DF, QD
     Dates: start: 20000101
  5. LITHIUM CARBONATE [Suspect]
     Indication: DEPRESSION
     Dosage: 100 MG, BID
     Dates: start: 20000101
  6. AKINETON  /AUS/ (BIPERIDEN HYDROCHLORIDE) [Concomitant]
  7. ALLOPURINOL [Concomitant]
  8. BERLTHYROX (LEVOTHYROXINE SODIUM) [Concomitant]
  9. BISOPROLOL FUMARATE [Concomitant]
  10. NOVONORM (REPAGLINIDE) [Concomitant]
  11. PANTOPRAZOLE SODIUM [Concomitant]

REACTIONS (2)
  - DELIRIUM [None]
  - DRUG INTERACTION [None]
